FAERS Safety Report 23576399 (Version 1)
Quarter: 2024Q1

REPORT INFORMATION
  Report Type: Spontaneous
  Country: US (occurrence: None)
  Receive Date: 20240228
  Receipt Date: 20240228
  Transmission Date: 20240409
  Serious: Yes (Hospitalization)
  Sender: FDA-Public Use
  Company Number: None

PATIENT
  Age: 49 Year
  Sex: Female
  Weight: 92.5 kg

DRUGS (1)
  1. TRABECTEDIN [Suspect]
     Active Substance: TRABECTEDIN
     Dates: end: 20240207

REACTIONS (4)
  - Alanine aminotransferase increased [None]
  - Myalgia [None]
  - Pain in extremity [None]
  - Rhabdomyolysis [None]

NARRATIVE: CASE EVENT DATE: 20240217
